FAERS Safety Report 6131924-5 (Version None)
Quarter: 2009Q1

REPORT INFORMATION
  Report Type: 
  Country: None (occurrence: None)
  Receive Date: 20090325
  Receipt Date: 20090320
  Transmission Date: 20090719
  Serious: Yes (Other)
  Sender: FDA-Public Use
  Company Number: US-PFIZER INC-2009165292

PATIENT
  Sex: Female
  Weight: 63.502 kg

DRUGS (1)
  1. NARDIL [Suspect]
     Indication: DEPRESSION
     Route: 048
     Dates: start: 20071101, end: 20080401

REACTIONS (2)
  - HYPOTENSION [None]
  - INSOMNIA [None]
